FAERS Safety Report 23679072 (Version 3)
Quarter: 2024Q2

REPORT INFORMATION
  Report Type: Report from Study
  Country: US (occurrence: US)
  Receive Date: 20240327
  Receipt Date: 20240524
  Transmission Date: 20240715
  Serious: Yes (Hospitalization, Other)
  Sender: FDA-Public Use
  Company Number: US-002147023-NVSC2023US197688

PATIENT
  Age: 71 Year
  Sex: Male
  Weight: 64.399 kg

DRUGS (18)
  1. LAMPRENE [Suspect]
     Active Substance: CLOFAZIMINE
     Indication: Atypical mycobacterial infection
     Dosage: 100 MG, QD
     Route: 048
     Dates: start: 20230722, end: 20230726
  2. LAMPRENE [Suspect]
     Active Substance: CLOFAZIMINE
     Dosage: 100 MG, QD
     Route: 048
     Dates: start: 20230925
  3. LAMPRENE [Suspect]
     Active Substance: CLOFAZIMINE
     Dosage: 100 MG, QD
     Route: 048
     Dates: end: 20240104
  4. LAMPRENE [Suspect]
     Active Substance: CLOFAZIMINE
     Dosage: UNK
     Route: 048
     Dates: start: 20240320, end: 20240415
  5. AZITHROMYCIN [Concomitant]
     Active Substance: AZITHROMYCIN
     Indication: Pneumonia
     Dosage: 500 MG, QD
     Route: 065
     Dates: start: 20210326
  6. AZITHROMYCIN [Concomitant]
     Active Substance: AZITHROMYCIN
     Dosage: 500 MG, QD
     Route: 065
     Dates: start: 20230722
  7. AZITHROMYCIN [Concomitant]
     Active Substance: AZITHROMYCIN
     Dosage: UNK
     Route: 065
     Dates: end: 20240104
  8. AZITHROMYCIN [Concomitant]
     Active Substance: AZITHROMYCIN
     Dosage: UNK
     Route: 065
     Dates: start: 20240314, end: 20240415
  9. RIFABUTIN [Concomitant]
     Active Substance: RIFABUTIN
     Indication: Pneumonia
     Dosage: 150 MG, BID
     Route: 065
     Dates: start: 20230718
  10. RIFABUTIN [Concomitant]
     Active Substance: RIFABUTIN
     Dosage: 300 MG, QD
     Route: 065
     Dates: start: 20230722
  11. RIFABUTIN [Concomitant]
     Active Substance: RIFABUTIN
     Dosage: UNK
     Route: 065
     Dates: end: 20240104
  12. MYCOPHENOLIC ACID [Concomitant]
     Active Substance: MYCOPHENOLIC ACID
     Indication: Renal transplant
     Dosage: 250 MG, BID
     Route: 065
  13. MYCOPHENOLIC ACID [Concomitant]
     Active Substance: MYCOPHENOLIC ACID
     Dosage: 200 MILLIGRAM PER MILLILITRE  SUSP. TAKE 1.25 ML BY MOUTH BID
     Route: 048
     Dates: start: 20200818
  14. TACROLIMUS [Concomitant]
     Active Substance: TACROLIMUS
     Indication: Renal transplant
     Dosage: 1 MG, QD
     Route: 065
     Dates: start: 20200818
  15. ETHAMBUTOL [Concomitant]
     Active Substance: ETHAMBUTOL HYDROCHLORIDE
     Indication: Product used for unknown indication
     Dosage: UNK
     Route: 065
     Dates: end: 20240104
  16. ETHAMBUTOL [Concomitant]
     Active Substance: ETHAMBUTOL HYDROCHLORIDE
     Dosage: UNK
     Route: 065
     Dates: end: 20240415
  17. RIFAMPIN [Concomitant]
     Active Substance: RIFAMPIN
     Indication: Product used for unknown indication
     Dosage: UNK
     Route: 065
  18. RIFAMPIN [Concomitant]
     Active Substance: RIFAMPIN
     Dosage: UNK
     Route: 065
     Dates: start: 20240317, end: 20240415

REACTIONS (36)
  - Pneumonia aspiration [Unknown]
  - Rhinovirus infection [Unknown]
  - Chills [Unknown]
  - Productive cough [Unknown]
  - Asthenia [Unknown]
  - Pyrexia [Not Recovered/Not Resolved]
  - Enterovirus infection [Unknown]
  - Pleural effusion [Unknown]
  - Bronchiectasis [Unknown]
  - Pericardial effusion [Unknown]
  - Pneumomediastinum [Unknown]
  - Polycystic liver disease [Unknown]
  - Fatigue [Recovered/Resolved]
  - Liver function test increased [Recovering/Resolving]
  - Rhinorrhoea [Unknown]
  - Procedural pain [Unknown]
  - Weight decreased [Unknown]
  - Hyponatraemia [Unknown]
  - Lip ulceration [Unknown]
  - Pharyngeal swelling [Unknown]
  - Insomnia [Unknown]
  - Upper-airway cough syndrome [Unknown]
  - Dyspnoea [Unknown]
  - Headache [Recovered/Resolved]
  - Nausea [Recovered/Resolved]
  - Sputum discoloured [Recovered/Resolved]
  - Fatigue [Not Recovered/Not Resolved]
  - Abdominal distension [Not Recovered/Not Resolved]
  - Epistaxis [Recovered/Resolved]
  - Chest discomfort [Recovering/Resolving]
  - Intervertebral disc degeneration [Not Recovered/Not Resolved]
  - Musculoskeletal pain [Not Recovered/Not Resolved]
  - Throat tightness [Not Recovered/Not Resolved]
  - Sinus congestion [Not Recovered/Not Resolved]
  - Tinnitus [Recovered/Resolved]
  - Decreased appetite [Not Recovered/Not Resolved]

NARRATIVE: CASE EVENT DATE: 20230722
